FAERS Safety Report 8547345-1 (Version None)
Quarter: 2012Q3

REPORT INFORMATION
  Report Type: 
  Country: None (occurrence: None)
  Receive Date: 20120727
  Receipt Date: 20120321
  Transmission Date: 20120928
  Serious: No
  Sender: FDA-Public Use
  Company Number: US-ASTRAZENECA-2012SE19248

PATIENT
  Age: 53 Year
  Sex: Female
  Weight: 59.9 kg

DRUGS (4)
  1. SEROQUEL XR [Suspect]
     Indication: DEPRESSION
     Route: 048
  2. HCTZ WATER PILL [Concomitant]
     Indication: BLOOD PRESSURE ABNORMAL
  3. SEROQUEL XR [Suspect]
     Indication: MENTAL DISORDER
     Route: 048
  4. SERTRALINE GENERIC FORM OF ZOLOFT [Concomitant]
     Indication: DEPRESSION

REACTIONS (3)
  - MEMORY IMPAIRMENT [None]
  - DIZZINESS [None]
  - DRUG PRESCRIBING ERROR [None]
